FAERS Safety Report 6318956-9 (Version None)
Quarter: 2009Q3

REPORT INFORMATION
  Report Type: 
  Country: None (occurrence: None)
  Receive Date: 20090821
  Receipt Date: 20081003
  Transmission Date: 20100115
  Serious: No
  Sender: FDA-Public Use
  Company Number: US-ABBOTT-08P-165-0479920-00

PATIENT
  Sex: Male
  Weight: 97.156 kg

DRUGS (11)
  1. NIASPAN [Suspect]
     Indication: DRUG USE FOR UNKNOWN INDICATION
     Dates: start: 20080907, end: 20080914
  2. MIXTARD HUMAN 70/30 [Concomitant]
     Indication: DIABETES MELLITUS
     Route: 058
  3. LISINOPRIL [Concomitant]
     Indication: BLOOD PRESSURE
     Route: 048
  4. FUROSEMIDE [Concomitant]
     Indication: BLOOD PRESSURE
     Route: 048
  5. AMLODIPINE MALEATE [Concomitant]
     Indication: BLOOD PRESSURE
     Route: 048
  6. BENAZEPRIL HYDROCHLORIDE [Concomitant]
     Indication: BLOOD PRESSURE
     Route: 048
  7. SIMVASTATIN [Concomitant]
     Indication: BLOOD CHOLESTEROL
     Route: 048
  8. METOPROLOL [Concomitant]
     Indication: BLOOD PRESSURE
     Route: 048
  9. ISOSORBIDE DINITRATE [Concomitant]
     Indication: BLOOD PRESSURE
     Route: 048
  10. LORATADINE [Concomitant]
     Indication: BLOOD PRESSURE
     Route: 048
  11. GEMFIBROZIL [Concomitant]
     Indication: BLOOD TRIGLYCERIDES
     Route: 048

REACTIONS (5)
  - ASTHENIA [None]
  - DECREASED APPETITE [None]
  - EYE PAIN [None]
  - GOUT [None]
  - HEADACHE [None]
